FAERS Safety Report 15034134 (Version 1)
Quarter: 2018Q2

REPORT INFORMATION
  Report Type: Spontaneous
  Country: US (occurrence: US)
  Receive Date: 20180620
  Receipt Date: 20180620
  Transmission Date: 20180711
  Serious: No
  Sender: FDA-Public Use
  Company Number: US-TEVA-812394ACC

PATIENT
  Sex: Female

DRUGS (2)
  1. LIDOCAINE. [Suspect]
     Active Substance: LIDOCAINE
     Indication: STENOSIS
     Dates: start: 201707
  2. LIDOCAINE. [Suspect]
     Active Substance: LIDOCAINE
     Indication: BACK PAIN

REACTIONS (4)
  - Lip dry [Recovering/Resolving]
  - Lip pain [Recovering/Resolving]
  - Product use in unapproved indication [Unknown]
  - Oral discomfort [Recovering/Resolving]

NARRATIVE: CASE EVENT DATE: 201707
